FAERS Safety Report 8585715-6 (Version None)
Quarter: 2012Q3

REPORT INFORMATION
  Report Type: 
  Country: None (occurrence: None)
  Receive Date: 20120810
  Receipt Date: 20120806
  Transmission Date: 20120928
  Serious: No
  Sender: FDA-Public Use
  Company Number: US-PFIZER INC-2012192087

PATIENT
  Age: 59 Year
  Sex: Female
  Weight: 58.957 kg

DRUGS (5)
  1. ZOMIG [Concomitant]
     Indication: MIGRAINE
     Dosage: UNK
  2. RELPAX [Suspect]
     Indication: MIGRAINE
     Dosage: 40 MG, AS NEEDED
  3. AMERGE [Concomitant]
     Indication: MIGRAINE
     Dosage: UNK
  4. IBUPROFEN [Concomitant]
     Indication: OSTEOARTHRITIS
     Dosage: 800 MG, AS NEEDED
  5. ACETYLSALICYLIC ACID [Concomitant]
     Indication: OSTEOARTHRITIS
     Dosage: 325 MG, AS NEEDED

REACTIONS (2)
  - ARTHRALGIA [None]
  - LOW DENSITY LIPOPROTEIN INCREASED [None]
